FAERS Safety Report 20471933 (Version 1)
Quarter: 2022Q1

REPORT INFORMATION
  Report Type: Report from Study
  Country: CN (occurrence: CN)
  Receive Date: 20220214
  Receipt Date: 20220214
  Transmission Date: 20220424
  Serious: Yes (Hospitalization)
  Sender: FDA-Public Use
  Company Number: CN-KARYOPHARM-2022KPT000162

PATIENT
  Age: 25 Year
  Sex: Female

DRUGS (8)
  1. SELINEXOR [Suspect]
     Active Substance: SELINEXOR
     Indication: Peripheral T-cell lymphoma unspecified
     Dosage: 60 MG, SINGLE
     Route: 048
     Dates: start: 20220111, end: 20220111
  2. SELINEXOR [Suspect]
     Active Substance: SELINEXOR
     Dosage: 40 MG, SINGLE
     Route: 048
     Dates: start: 20220118, end: 20220118
  3. SELINEXOR [Suspect]
     Active Substance: SELINEXOR
     Dosage: 40 MG, SINGLE
     Route: 048
     Dates: start: 20220129, end: 20220129
  4. GEMCITABINE [Suspect]
     Active Substance: GEMCITABINE
     Indication: Peripheral T-cell lymphoma unspecified
     Dosage: 1.42 G, SINGLE
     Route: 042
     Dates: start: 20220111, end: 20220111
  5. GEMCITABINE [Suspect]
     Active Substance: GEMCITABINE
     Dosage: 1.42 G, SINGLE
     Route: 042
     Dates: start: 20220118, end: 20220118
  6. GEMCITABINE [Suspect]
     Active Substance: GEMCITABINE
     Dosage: 1.37 G, SINGLE
     Route: 042
     Dates: start: 20220129, end: 20220129
  7. OXALIPLATIN [Suspect]
     Active Substance: OXALIPLATIN
     Indication: Peripheral T-cell lymphoma unspecified
     Dosage: 185 MG, SINGLE
     Route: 042
     Dates: start: 20220111, end: 20220111
  8. OXALIPLATIN [Suspect]
     Active Substance: OXALIPLATIN
     Dosage: 178 MG, SINGLE
     Route: 042
     Dates: start: 20220129, end: 20220129

REACTIONS (1)
  - Decreased appetite [Not Recovered/Not Resolved]

NARRATIVE: CASE EVENT DATE: 20220129
